FAERS Safety Report 4606025-5 (Version None)
Quarter: 2005Q1

REPORT INFORMATION
  Report Type: 
  Country: None (occurrence: None)
  Receive Date: 20050311
  Receipt Date: 20050126
  Transmission Date: 20050727
  Serious: Yes (Other)
  Sender: FDA-Public Use
  Company Number: US-ROCHE-393887

PATIENT
  Age: 48 Year
  Sex: Female
  Weight: 73.5 kg

DRUGS (4)
  1. PEGASYS [Suspect]
     Route: 058
     Dates: start: 20040804
  2. COPEGUS [Suspect]
     Dosage: 2 AM AND 2 PM
     Route: 048
     Dates: start: 20040804
  3. AVAPRO [Concomitant]
     Indication: HYPERTENSION
     Route: 048
  4. PREMARIN [Concomitant]
     Indication: HORMONE REPLACEMENT THERAPY
     Route: 048

REACTIONS (12)
  - ANAEMIA [None]
  - ANXIETY [None]
  - COLONIC POLYP [None]
  - DIARRHOEA [None]
  - HAEMATEMESIS [None]
  - HEADACHE [None]
  - RECTAL HAEMORRHAGE [None]
  - RED BLOOD CELL COUNT DECREASED [None]
  - VASCULITIS [None]
  - VOMITING [None]
  - WEIGHT DECREASED [None]
  - WHITE BLOOD CELL COUNT DECREASED [None]
